FAERS Safety Report 8425353-9 (Version None)
Quarter: 2012Q2

REPORT INFORMATION
  Report Type: 
  Country: None (occurrence: None)
  Receive Date: 20120611
  Receipt Date: 20120604
  Transmission Date: 20120825
  Serious: No
  Sender: FDA-Public Use
  Company Number: US-BAYER-2012-056458

PATIENT
  Age: 77 Year
  Sex: Female
  Weight: 50 kg

DRUGS (3)
  1. ZESTRIL [Concomitant]
  2. ALEVE (CAPLET) [Suspect]
     Dosage: 2 TAB AS NEEDED
     Route: 048
     Dates: start: 20120401
  3. TENORMIN [Concomitant]

REACTIONS (1)
  - CONTUSION [None]
